FAERS Safety Report 10464030 (Version 2)
Quarter: 2014Q4

REPORT INFORMATION
  Report Type: Spontaneous
  Country: JP (occurrence: JP)
  Receive Date: 20140919
  Receipt Date: 20141015
  Transmission Date: 20150528
  Serious: Yes (Hospitalization)
  Sender: FDA-Public Use
  Company Number: JP-MERZ NORTH AMERICA, INC.-14MRZ-00338

PATIENT
  Age: 8 Year
  Sex: Male

DRUGS (1)
  1. BOTOX [Suspect]
     Active Substance: ONABOTULINUMTOXINA
     Indication: DYSTONIA
     Dosage: NOT REPORTED

REACTIONS (11)
  - Dyskinesia [None]
  - Joint dislocation [None]
  - Aspiration [Recovered/Resolved]
  - Clonus [None]
  - Stridor [None]
  - Atlantoaxial instability [Recovered/Resolved]
  - Pneumonia aspiration [None]
  - Feeding disorder of infancy or early childhood [Recovered/Resolved]
  - Cervical myelopathy [None]
  - Congenital anomaly [Recovered/Resolved]
  - Dysphagia [None]
